FAERS Safety Report 12393350 (Version 1)
Quarter: 2016Q2

REPORT INFORMATION
  Report Type: Spontaneous
  Country: IT (occurrence: IT)
  Receive Date: 20160523
  Receipt Date: 20160523
  Transmission Date: 20160815
  Serious: Yes (Other)
  Sender: FDA-Public Use
  Company Number: IT-CIPLA LTD.-2016IT05222

PATIENT

DRUGS (12)
  1. FOSAMPRENAVIR [Suspect]
     Active Substance: FOSAMPRENAVIR
     Indication: HIV INFECTION
     Dosage: UNK
     Route: 065
  2. TENOFOVIR [Suspect]
     Active Substance: TENOFOVIR
     Indication: HIV INFECTION
     Dosage: UNK
     Route: 065
  3. EMTRICITABINE [Suspect]
     Active Substance: EMTRICITABINE
     Indication: HEPATITIS VIRAL
  4. LAMIVUDINE. [Suspect]
     Active Substance: LAMIVUDINE
     Indication: HEPATITIS VIRAL
  5. LOPINAVIR [Suspect]
     Active Substance: LOPINAVIR
     Indication: HEPATITIS VIRAL
  6. FOSAMPRENAVIR [Suspect]
     Active Substance: FOSAMPRENAVIR
     Indication: HEPATITIS VIRAL
  7. RITONAVIR. [Suspect]
     Active Substance: RITONAVIR
     Indication: HIV INFECTION
     Dosage: UNK
     Route: 065
  8. LOPINAVIR [Suspect]
     Active Substance: LOPINAVIR
     Indication: HIV INFECTION
     Dosage: UNK
     Route: 065
  9. RITONAVIR. [Suspect]
     Active Substance: RITONAVIR
     Indication: HEPATITIS VIRAL
  10. TENOFOVIR [Suspect]
     Active Substance: TENOFOVIR
     Indication: HEPATITIS VIRAL
  11. EMTRICITABINE [Suspect]
     Active Substance: EMTRICITABINE
     Indication: HIV INFECTION
     Dosage: UNK
     Route: 065
  12. LAMIVUDINE. [Suspect]
     Active Substance: LAMIVUDINE
     Indication: HIV INFECTION
     Dosage: UNK
     Route: 065

REACTIONS (1)
  - Nephropathy toxic [Unknown]
